FAERS Safety Report 8791035 (Version 1)
Quarter: 2012Q4

REPORT INFORMATION
  Report Type: Spontaneous
  Country: US (occurrence: None)
  Receive Date: 20120906
  Receipt Date: 20120906
  Transmission Date: 20130627
  Serious: Yes (Other)
  Sender: FDA-Public Use
  Company Number: OXYA20120008

PATIENT
  Age: 40 Year
  Sex: Female

DRUGS (2)
  1. OXYCODONE/ACETAMINOPHEN [Suspect]
     Indication: DRUG ABUSE
     Route: 045
  2. Q-PAP TABLETS 325MG (PARACETAMOL) (TABLETS) [Suspect]
     Indication: DRUG ABUSE
     Route: 045

REACTIONS (6)
  - Rhinalgia [None]
  - Drug abuse [None]
  - Wrong technique in drug usage process [None]
  - Nasopharyngitis [None]
  - Fungal infection [None]
  - Nasal necrosis [None]
